FAERS Safety Report 9380077 (Version 1)
Quarter: 2013Q3

REPORT INFORMATION
  Report Type: Spontaneous
  Country: US (occurrence: None)
  Receive Date: 20130701
  Receipt Date: 20130701
  Transmission Date: 20140515
  Serious: Yes (Other)
  Sender: FDA-Public Use
  Company Number: None

PATIENT
  Age: 65 Year
  Sex: Male
  Weight: 63.5 kg

DRUGS (8)
  1. OMNISCAN [Suspect]
  2. PREDNISONE [Concomitant]
  3. SYNTHROID [Concomitant]
  4. LOSARTAN [Concomitant]
  5. VITAMIN D [Concomitant]
  6. OMEGA 3 [Concomitant]
  7. CALCIUM [Concomitant]
  8. 1 ADAY ADULT MENS VITAMIN [Concomitant]

REACTIONS (7)
  - Injection site extravasation [None]
  - Musculoskeletal stiffness [None]
  - Activities of daily living impaired [None]
  - Pain in extremity [None]
  - Musculoskeletal pain [None]
  - Myalgia [None]
  - Drug ineffective [None]
